FAERS Safety Report 6232242-7 (Version None)
Quarter: 2009Q2

REPORT INFORMATION
  Report Type: 
  Country: None (occurrence: None)
  Receive Date: 20090617
  Receipt Date: 20090610
  Transmission Date: 20091009
  Serious: Yes (Death)
  Sender: FDA-Public Use
  Company Number: JP-PFIZER INC-2009226419

PATIENT
  Age: 81 Year

DRUGS (7)
  1. SLONNON [Suspect]
     Indication: HEPARIN-INDUCED THROMBOCYTOPENIA
     Dosage: UNK
     Route: 042
     Dates: start: 20090413, end: 20090508
  2. PREDONINE [Concomitant]
  3. EPOGIN [Concomitant]
  4. MEROPEN [Concomitant]
  5. GAMIMUNE N 5% [Concomitant]
  6. MICAFUNGIN SODIUM [Concomitant]
  7. VANCOMYCIN [Concomitant]

REACTIONS (1)
  - SEPSIS [None]
